FAERS Safety Report 8486671-1 (Version None)
Quarter: 2012Q3

REPORT INFORMATION
  Report Type: 
  Country: None (occurrence: None)
  Receive Date: 20120703
  Receipt Date: 20120626
  Transmission Date: 20120928
  Serious: Yes (Hospitalization)
  Sender: FDA-Public Use
  Company Number: JP-AMGEN-JPNSP2012035680

PATIENT
  Age: 56 Year
  Sex: Female
  Weight: 51 kg

DRUGS (11)
  1. VELCADE [Suspect]
     Dosage: UNKNOWN
     Route: 065
  2. VFEND [Concomitant]
     Route: 048
     Dates: start: 20120510
  3. VALTREX [Concomitant]
     Route: 048
     Dates: start: 20120510
  4. ASPIRIN [Concomitant]
     Route: 048
  5. LOSARTAN POTASSIUM [Concomitant]
     Route: 048
  6. CALCIUM CARBONATE [Concomitant]
     Route: 048
  7. PERSANTINE [Concomitant]
     Route: 048
  8. RANMARK [Suspect]
     Indication: MULTIPLE MYELOMA
     Dosage: 120 MG, QD
     Route: 058
     Dates: start: 20120523, end: 20120523
  9. ZETIA [Concomitant]
     Route: 048
  10. CADUET [Concomitant]
     Route: 048
  11. EDIROL(ELDECALCITOL) [Concomitant]
     Route: 048
     Dates: start: 20120523

REACTIONS (1)
  - HYPOCALCAEMIA [None]
